FAERS Safety Report 8920022 (Version 1)
Quarter: 2012Q4

REPORT INFORMATION
  Report Type: 
  Country: US (occurrence: US)
  Receive Date: 20121121
  Receipt Date: 20121121
  Transmission Date: 20130627
  Serious: No
  Sender: FDA-Public Use
  Company Number: US-BRISTOL-MYERS SQUIBB COMPANY-16205551

PATIENT

DRUGS (1)
  1. AVALIDE [Suspect]
     Dosage: in bottle

REACTIONS (1)
  - Medication error [Unknown]
